FAERS Safety Report 5212646-1 (Version None)
Quarter: 2007Q1

REPORT INFORMATION
  Report Type: 
  Country: None (occurrence: None)
  Receive Date: 20070118
  Receipt Date: 20070109
  Transmission Date: 20070707
  Serious: Yes (Hospitalization, Other)
  Sender: FDA-Public Use
  Company Number: US-PFIZER INC-2007002976

PATIENT
  Sex: Female
  Weight: 81.6 kg

DRUGS (8)
  1. BEXTRA [Suspect]
     Indication: BONE PAIN
     Route: 048
  2. PENTOXIFYLLINE [Concomitant]
  3. CLONAZEPAM [Concomitant]
  4. DARVOCET [Concomitant]
  5. PREVACID [Concomitant]
  6. CALCIUM [Concomitant]
  7. VITAMIN B COMPLEX CAP [Concomitant]
  8. TOPAMAX [Concomitant]

REACTIONS (2)
  - CEREBROVASCULAR ACCIDENT [None]
  - HEMIPARESIS [None]
